FAERS Safety Report 6369804-2 (Version None)
Quarter: 2009Q3

REPORT INFORMATION
  Report Type: 
  Country: None (occurrence: None)
  Receive Date: 20090923
  Receipt Date: 20090921
  Transmission Date: 20100115
  Serious: Yes (Death, Other)
  Sender: FDA-Public Use
  Company Number: US-BRISTOL-MYERS SQUIBB COMPANY-14786537

PATIENT
  Age: 6 Decade
  Sex: Male

DRUGS (2)
  1. COUMADIN [Suspect]
     Indication: CAROTID ENDARTERECTOMY
  2. PLAVIX [Suspect]
     Indication: CAROTID ENDARTERECTOMY

REACTIONS (2)
  - HAEMORRHAGE INTRACRANIAL [None]
  - PARTIAL SEIZURES [None]
